FAERS Safety Report 7146741 (Version 5)
Quarter: 2020Q3

REPORT INFORMATION
  Report Type: Report from Study
  Country: FR (occurrence: FR)
  Receive Date: 20091012
  Receipt Date: 20110214
  Transmission Date: 20201105
  Serious: Yes (Hospitalization)
  Sender: FDA-Public Use
  Company Number: FR-JNJFOC-20091001626

PATIENT
  Age: 59 Year
  Sex: Female
  Weight: 79 kg

DRUGS (17)
  1. PLACEBO [Suspect]
     Active Substance: UNSPECIFIED INGREDIENT
     Indication: CROHN^S DISEASE
     Route: 058
  2. HYDROCORTISONE. [Concomitant]
     Active Substance: HYDROCORTISONE
  3. CORTANCYL [Concomitant]
     Active Substance: PREDNISONE
  4. ZOPICLONE [Concomitant]
     Active Substance: ZOPICLONE
     Route: 048
  5. PLACEBO [Suspect]
     Active Substance: UNSPECIFIED INGREDIENT
     Route: 058
  6. LORAZEPAM. [Concomitant]
     Active Substance: LORAZEPAM
     Route: 048
  7. USTEKINUMAB [Suspect]
     Active Substance: USTEKINUMAB
     Indication: CROHN^S DISEASE
     Route: 042
  8. EFFEXOR [Concomitant]
     Active Substance: VENLAFAXINE HYDROCHLORIDE
     Route: 048
  9. MOTILIUM [Concomitant]
     Active Substance: DOMPERIDONE
     Route: 048
  10. AMLOR [Concomitant]
     Route: 048
  11. DAFALGAN CODEINE [Concomitant]
     Active Substance: ACETAMINOPHEN\CODEINE PHOSPHATE
     Indication: CROHN^S DISEASE
     Route: 048
  12. IDEOS [Concomitant]
     Route: 048
  13. PERINDOPRIL [Concomitant]
     Active Substance: PERINDOPRIL
     Route: 048
  14. PARIET [Concomitant]
     Active Substance: RABEPRAZOLE SODIUM
     Route: 048
  15. DIOKTAEDRISCHER SMEKTIT [Concomitant]
     Indication: CROHN^S DISEASE
     Route: 048
  16. SPASFON (PHLOROGLUCINOL, TRIMETHYLPHLOROGLUCINOL) [Concomitant]
     Active Substance: PHLOROGLUCINOL\1,3,5-TRIMETHOXYBENZENE
     Indication: CROHN^S DISEASE
     Route: 048
  17. USTEKINUMAB [Suspect]
     Active Substance: USTEKINUMAB
     Route: 042

REACTIONS (2)
  - Asthenia [Recovered/Resolved]
  - Pyrexia [Recovered/Resolved]

NARRATIVE: CASE EVENT DATE: 20090922
